FAERS Safety Report 18919786 (Version 2)
Quarter: 2022Q1

REPORT INFORMATION
  Report Type: Report from Study
  Country: DE (occurrence: DE)
  Receive Date: 20210221
  Receipt Date: 20220112
  Transmission Date: 20220424
  Serious: Yes (Other)
  Sender: FDA-Public Use
  Company Number: DE-ABBVIE-21K-062-3781089-00

PATIENT
  Sex: Female

DRUGS (1)
  1. HUMIRA [Suspect]
     Active Substance: ADALIMUMAB
     Indication: Crohn^s disease
     Route: 058
     Dates: start: 20160701

REACTIONS (7)
  - Macular degeneration [Unknown]
  - Macular degeneration [Unknown]
  - Inflammatory marker increased [Not Recovered/Not Resolved]
  - Gastrointestinal wall abnormal [Not Recovered/Not Resolved]
  - Visual impairment [Not Recovered/Not Resolved]
  - Agitation [Not Recovered/Not Resolved]
  - Poor quality sleep [Unknown]

NARRATIVE: CASE EVENT DATE: 20190101
